FAERS Safety Report 9400909 (Version 1)
Quarter: 2013Q3

REPORT INFORMATION
  Report Type: Spontaneous
  Country: US (occurrence: None)
  Receive Date: 20130712
  Receipt Date: 20130712
  Transmission Date: 20140515
  Serious: Yes (Other)
  Sender: FDA-Public Use
  Company Number: None

PATIENT
  Age: 61 None
  Sex: Female
  Weight: 63.5 kg

DRUGS (1)
  1. LISINOPRIL - HCTZ [Suspect]
     Indication: HYPERTENSION
     Dosage: I TAB DAILY
     Route: 048
     Dates: start: 201001

REACTIONS (2)
  - Swelling face [None]
  - Lip swelling [None]
